FAERS Safety Report 19798286 (Version 1)
Quarter: 2021Q3

REPORT INFORMATION
  Report Type: Spontaneous
  Country: US (occurrence: US)
  Receive Date: 20210907
  Receipt Date: 20210907
  Transmission Date: 20211014
  Serious: Yes (Life-Threatening, Hospitalization, Disabling)
  Sender: FDA-Public Use
  Company Number: None

PATIENT
  Age: 65 Year
  Sex: Female
  Weight: 62.55 kg

DRUGS (18)
  1. NATRAGEST PROGESTERONE [Concomitant]
  2. POTASSIUM CITRATE. [Concomitant]
     Active Substance: POTASSIUM CITRATE
  3. ASPIRIN. [Concomitant]
     Active Substance: ASPIRIN
  4. ALPHA LIPOIC ACID [Concomitant]
     Active Substance: .ALPHA.-LIPOIC ACID
  5. PANTOTHENIC ACID [Concomitant]
     Active Substance: PANTOTHENIC ACID
  6. INSTAFLEX [Concomitant]
     Active Substance: DIETARY SUPPLEMENT
  7. C [Concomitant]
  8. QUERCETIN [Concomitant]
     Active Substance: QUERCETIN
  9. DHEA [Concomitant]
     Active Substance: PRASTERONE
  10. BIO?FISETIN [Concomitant]
  11. REGEN?COV [Suspect]
     Active Substance: CASIRIVIMAB\IMDEVIMAB
     Indication: COVID-19
     Dosage: ?          QUANTITY:1 INJECTION(S);OTHER FREQUENCY:ONE TIME INFUSION;?
     Route: 042
     Dates: start: 20210830, end: 20210830
  12. ESTRIOL VAGINAL CREAM [Concomitant]
  13. VITAMIN B COMPLEX [Concomitant]
     Active Substance: CYANOCOBALAMIN\DEXPANTHENOL\NIACINAMIDE\PYRIDOXINE HYDROCHLORIDE\RIBOFLAVIN 5^-PHOSPHATE SODIUM\THIAMINE HYDROCHLORIDE\VITAMIN B COMPLEX
  14. PRODIOTIC [Concomitant]
  15. MULTI VITAMIN [Concomitant]
     Active Substance: VITAMINS
  16. WINE [Concomitant]
     Active Substance: WINE
  17. MELATONIN [Concomitant]
     Active Substance: MELATONIN
  18. HAIR VOLUME [Concomitant]

REACTIONS (4)
  - Blood sodium decreased [None]
  - Pyrexia [None]
  - Loss of consciousness [None]
  - Coma [None]

NARRATIVE: CASE EVENT DATE: 20210830
